FAERS Safety Report 9305618 (Version 1)
Quarter: 2013Q2

REPORT INFORMATION
  Report Type: Spontaneous
  Country: US (occurrence: None)
  Receive Date: 20130522
  Receipt Date: 20130522
  Transmission Date: 20140414
  Serious: Yes (Hospitalization)
  Sender: FDA-Public Use
  Company Number: None

PATIENT
  Age: 70 Year
  Sex: Female
  Weight: 53.5 kg

DRUGS (9)
  1. YERVOY [Suspect]
     Dosage: Q3WEEKS
     Route: 042
     Dates: start: 20130416, end: 20130507
  2. SYLATRON [Suspect]
     Dosage: Q1WEEK
     Route: 058
     Dates: start: 20130416, end: 20130514
  3. MVI [Concomitant]
  4. PRAVASTATIN [Concomitant]
  5. VALACYCLOVIR [Concomitant]
  6. VITAMIN [Concomitant]
  7. ENALAPRIL [Concomitant]
  8. HCTZ [Concomitant]
  9. METFORMIN [Concomitant]

REACTIONS (1)
  - Diarrhoea [None]
